FAERS Safety Report 10176990 (Version 1)
Quarter: 2014Q2

REPORT INFORMATION
  Report Type: Spontaneous
  Country: US (occurrence: None)
  Receive Date: 20140515
  Receipt Date: 20140515
  Transmission Date: 20141212
  Serious: Yes (Life-Threatening, Hospitalization, Disabling)
  Sender: FDA-Public Use
  Company Number: None

PATIENT
  Age: 48 Year
  Sex: Female
  Weight: 72.58 kg

DRUGS (1)
  1. HUMIRA [Suspect]
     Indication: RHEUMATOID ARTHRITIS
     Dosage: 1 EVERY OTHER WEEK GIVEN INTO/UNDER THE SKIN
     Route: 042

REACTIONS (9)
  - Septic shock [None]
  - Blood pressure increased [None]
  - Cardiac failure congestive [None]
  - Fluid overload [None]
  - Arthralgia [None]
  - Swelling [None]
  - Tremor [None]
  - Memory impairment [None]
  - Post-traumatic stress disorder [None]
